FAERS Safety Report 9899667 (Version 1)
Quarter: 2014Q1

REPORT INFORMATION
  Report Type: Spontaneous
  Country: US (occurrence: US)
  Receive Date: 20140214
  Receipt Date: 20140214
  Transmission Date: 20141002
  Serious: No
  Sender: FDA-Public Use
  Company Number: US-ABBVIE-13P-163-1049506-00

PATIENT
  Sex: Male

DRUGS (1)
  1. SIMCOR 500/40 [Suspect]
     Indication: BLOOD CHOLESTEROL INCREASED
     Dosage: 500/40 MILLIGRAMS
     Dates: start: 201302, end: 201302

REACTIONS (1)
  - Paraesthesia [Recovered/Resolved]
